FAERS Safety Report 4714008-X (Version None)
Quarter: 2005Q3

REPORT INFORMATION
  Report Type: 
  Country: None (occurrence: None)
  Receive Date: 20050712
  Receipt Date: 20050624
  Transmission Date: 20060218
  Serious: Yes (Life-Threatening, Hospitalization)
  Sender: FDA-Public Use
  Company Number: BRO-008772

PATIENT
  Age: 35 Year
  Sex: Female

DRUGS (11)
  1. IOPAMIDOL [Suspect]
     Indication: SPINAL MYELOGRAM
     Dosage: IT
     Route: 037
     Dates: start: 19950929, end: 19950929
  2. MAGALDRATE / RIOPAN GEL [Suspect]
     Indication: PROPHYLAXIS
     Dosage: PO
     Route: 048
     Dates: start: 19950928, end: 19951003
  3. TETRAZEPAM / MUSARIL [Suspect]
     Indication: BACK PAIN
     Dosage: 150 MG, PO
     Route: 048
     Dates: start: 19950928, end: 19951004
  4. DICLOFENAC POTASSIUM / VOLTAREN [Suspect]
     Indication: BACK PAIN
     Dosage: 150 MG, PO
     Route: 048
     Dates: start: 19950928, end: 19951004
  5. MUSKEL TRANCOPAL COMP. [Suspect]
     Indication: BACK PAIN
     Dosage: PO
     Route: 048
     Dates: start: 19950921, end: 19950927
  6. TRAMADOL HCL [Suspect]
     Indication: BACK PAIN
     Dosage: PO
     Route: 048
     Dates: start: 19950921, end: 19950927
  7. DIAZEPAM [Suspect]
     Indication: BACK PAIN
     Dosage: SY
     Route: 035
     Dates: start: 19950921, end: 19950927
  8. VITAMIN B12 [Suspect]
     Indication: BACK PAIN
     Dosage: IV
     Route: 042
     Dates: start: 19950918, end: 19950918
  9. DICLOFENAC SODIUM [Suspect]
     Indication: BACK PAIN
     Dosage: SY
     Route: 035
     Dates: start: 19950918, end: 19950919
  10. PIROXICAM [Suspect]
     Indication: BACK PAIN
     Dosage: SY
     Route: 035
     Dates: start: 19950918, end: 19950918
  11. PREDNISONE [Suspect]
     Indication: BACK PAIN
     Dosage: SY
     Route: 035
     Dates: start: 19950918, end: 19950918

REACTIONS (1)
  - TOXIC EPIDERMAL NECROLYSIS [None]
